FAERS Safety Report 19720833 (Version 1)
Quarter: 2021Q3

REPORT INFORMATION
  Report Type: Spontaneous
  Country: US (occurrence: US)
  Receive Date: 20210819
  Receipt Date: 20210819
  Transmission Date: 20211014
  Serious: No
  Sender: FDA-Public Use
  Company Number: US-ASTRAZENECA-2021A635929

PATIENT
  Age: 768 Month
  Sex: Female

DRUGS (1)
  1. SYMBICORT [Suspect]
     Active Substance: BUDESONIDE\FORMOTEROL FUMARATE DIHYDRATE
     Indication: ASTHMA
     Dosage: 160/4.5MCG 2 PUFFS TWO TIMES A DAY
     Route: 055
     Dates: start: 202106

REACTIONS (7)
  - Feeling abnormal [Unknown]
  - Heart rate increased [Unknown]
  - Asthma [Unknown]
  - Dyspnoea [Unknown]
  - Device delivery system issue [Unknown]
  - Feeling jittery [Unknown]
  - Dysgeusia [Unknown]

NARRATIVE: CASE EVENT DATE: 202107
